FAERS Safety Report 4395855-3 (Version None)
Quarter: 2004Q3

REPORT INFORMATION
  Report Type: 
  Country: None (occurrence: None)
  Receive Date: 20040712
  Receipt Date: 20040703
  Transmission Date: 20050211
  Serious: Yes (Hospitalization)
  Sender: FDA-Public Use
  Company Number: 2004UW13802

PATIENT
  Age: 65 Year
  Sex: Male

DRUGS (1)
  1. CRESTOR [Suspect]

REACTIONS (6)
  - ASTHENIA [None]
  - FULL BLOOD COUNT DECREASED [None]
  - IMMUNE SYSTEM DISORDER [None]
  - LABORATORY TEST ABNORMAL [None]
  - PNEUMONIA [None]
  - VIRAL INFECTION [None]
